FAERS Safety Report 15248097 (Version 1)
Quarter: 2018Q4

REPORT INFORMATION
  Report Type: Spontaneous
  Country: AU (occurrence: AU)
  Receive Date: 20180807
  Receipt Date: 20180807
  Transmission Date: 20190204
  Serious: Yes (Hospitalization, Other)
  Sender: FDA-Public Use
  Company Number: AU-INGENUS PHARMACEUTICALS NJ, LLC-ING201807-000802

PATIENT
  Age: 39 Year
  Sex: Female

DRUGS (3)
  1. CARISOPRODOL, ASPIRIN AND CODEINE PHOSPHATE [Suspect]
     Active Substance: ASPIRIN\CARISOPRODOL\CODEINE PHOSPHATE
     Indication: BACK PAIN
  2. CARISOPRODOL, ASPIRIN AND CODEINE PHOSPHATE [Suspect]
     Active Substance: ASPIRIN\CARISOPRODOL\CODEINE PHOSPHATE
     Dosage: 40 TABS
  3. IBUPROFEN. [Suspect]
     Active Substance: IBUPROFEN
     Indication: BACK PAIN

REACTIONS (11)
  - Intentional product misuse [Unknown]
  - Endoscopy small intestine [None]
  - Gastritis erosive [Unknown]
  - Small intestinal obstruction [Unknown]
  - Pain [Unknown]
  - Drug dependence [Unknown]
  - Insomnia [Unknown]
  - Abdominal pain [Unknown]
  - Constipation [Unknown]
  - Restlessness [Unknown]
  - Withdrawal syndrome [Unknown]
